FAERS Safety Report 9926254 (Version 1)
Quarter: 2014Q1

REPORT INFORMATION
  Report Type: Spontaneous
  Country: US (occurrence: US)
  Receive Date: 20140226
  Receipt Date: 20140226
  Transmission Date: 20141002
  Serious: Yes (Hospitalization)
  Sender: FDA-Public Use
  Company Number: US-MYLANLABS-2014S1003605

PATIENT
  Age: 31 Year
  Sex: Female

DRUGS (4)
  1. LISINOPRIL [Suspect]
     Route: 065
  2. LOSARTAN [Suspect]
     Indication: HYPERTENSION
     Route: 065
  3. NIFEDIPINE [Concomitant]
     Indication: HYPERTENSION
     Route: 065
  4. CLONIDINE [Concomitant]
     Indication: HYPERTENSION
     Route: 065

REACTIONS (1)
  - Small bowel angioedema [Recovered/Resolved]
